FAERS Safety Report 12632198 (Version 2)
Quarter: 2016Q3

REPORT INFORMATION
  Report Type: Spontaneous
  Country: US (occurrence: US)
  Receive Date: 20160808
  Receipt Date: 20160808
  Transmission Date: 20161109
  Serious: No
  Sender: FDA-Public Use
  Company Number: US-BEH-2016062148

PATIENT
  Sex: Female
  Weight: 63 kg

DRUGS (10)
  1. EFFEXOR [Concomitant]
     Active Substance: VENLAFAXINE HYDROCHLORIDE
  2. XOPENEX [Concomitant]
     Active Substance: LEVALBUTEROL HYDROCHLORIDE
  3. MIDORINE [Concomitant]
     Active Substance: MIDODRINE
  4. ALVESCO [Concomitant]
     Active Substance: CICLESONIDE
  5. CELLCEPT [Concomitant]
     Active Substance: MYCOPHENOLATE MOFETIL\MYCOPHENOLATE MOFETIL HYDROCHLORIDE
  6. FLUDROCORTISONE [Concomitant]
     Active Substance: FLUDROCORTISONE
  7. MIRALAX [Concomitant]
     Active Substance: POLYETHYLENE GLYCOL 3350
  8. CENTRUM SILVER [Concomitant]
     Active Substance: MINERALS\VITAMINS
  9. SYNTHROID [Concomitant]
     Active Substance: LEVOTHYROXINE SODIUM
  10. HIZENTRA [Suspect]
     Active Substance: HUMAN IMMUNOGLOBULIN G
     Indication: DEMYELINATING POLYNEUROPATHY
     Route: 058
     Dates: start: 20130226

REACTIONS (1)
  - Sinusitis [Unknown]
